FAERS Safety Report 15557839 (Version 2)
Quarter: 2018Q4

REPORT INFORMATION
  Report Type: Spontaneous
  Country: GB (occurrence: GB)
  Receive Date: 20181027
  Receipt Date: 20181115
  Transmission Date: 20190205
  Serious: Yes (Death, Disabling, Other)
  Sender: FDA-Public Use
  Company Number: GB-009507513-1810GBR010759

PATIENT
  Age: 74 Year
  Sex: Female

DRUGS (2)
  1. ZEROBASE [Suspect]
     Active Substance: MINERAL OIL\PETROLATUM
     Indication: PSORIASIS
     Route: 061
  2. THERAPY UNSPECIFIED [Suspect]
     Active Substance: UNSPECIFIED INGREDIENT
     Dosage: UNK

REACTIONS (3)
  - Immobile [Unknown]
  - Adverse event [Unknown]
  - Thermal burn [Fatal]

NARRATIVE: CASE EVENT DATE: 20150530
